FAERS Safety Report 17745852 (Version 3)
Quarter: 2022Q1

REPORT INFORMATION
  Report Type: Spontaneous
  Country: CA (occurrence: CA)
  Receive Date: 20200505
  Receipt Date: 20220104
  Transmission Date: 20220424
  Serious: Yes (Hospitalization, Other)
  Sender: FDA-Public Use
  Company Number: CA-PFIZER INC-2020084458

PATIENT
  Age: 66 Year
  Sex: Female

DRUGS (4)
  1. XALKORI [Suspect]
     Active Substance: CRIZOTINIB
     Indication: Non-small cell lung cancer
     Dosage: 250 MG, DAILY FOR 7 DAYS
     Dates: start: 20200129
  2. XALKORI [Suspect]
     Active Substance: CRIZOTINIB
     Dosage: 250 MG, 2X/DAY(THEN INCREASE TO TWICE A DAY)
     Dates: end: 20200219
  3. XALKORI [Suspect]
     Active Substance: CRIZOTINIB
     Dosage: UNK
     Dates: start: 20200317
  4. XALKORI [Suspect]
     Active Substance: CRIZOTINIB
     Dosage: 200 MG, 2X/DAY

REACTIONS (4)
  - Pyrexia [Unknown]
  - Hepatitis [Unknown]
  - Thrombocytopenia [Unknown]
  - Renal impairment [Unknown]
